FAERS Safety Report 11738688 (Version 1)
Quarter: 2015Q4

REPORT INFORMATION
  Report Type: Spontaneous
  Country: US (occurrence: US)
  Receive Date: 20151110
  Receipt Date: 20151110
  Transmission Date: 20160304
  Serious: No
  Sender: FDA-Public Use
  Company Number: US-ELI_LILLY_AND_COMPANY-US201208004506

PATIENT
  Age: 55 Year
  Sex: Female

DRUGS (1)
  1. FORTEO [Suspect]
     Active Substance: TERIPARATIDE
     Indication: OSTEOPOROSIS
     Dosage: 20 UG, QD

REACTIONS (6)
  - Sleep disorder due to a general medical condition [Unknown]
  - Muscle spasms [Not Recovered/Not Resolved]
  - Insomnia [Unknown]
  - Weight increased [Unknown]
  - Night sweats [Recovered/Resolved]
  - Hot flush [Recovered/Resolved]
